FAERS Safety Report 20238963 (Version 2)
Quarter: 2023Q2

REPORT INFORMATION
  Report Type: Spontaneous
  Country: FR (occurrence: FR)
  Receive Date: 20211228
  Receipt Date: 20230612
  Transmission Date: 20230722
  Serious: Yes (Other)
  Sender: FDA-Public Use
  Company Number: None

PATIENT
  Age: 63 Year
  Sex: Female

DRUGS (19)
  1. CYTARABINE [Suspect]
     Active Substance: CYTARABINE
     Indication: Product used for unknown indication
     Dosage: UNK (INDUCTION I DAY 2)
     Route: 065
     Dates: start: 20201216
  2. CYTARABINE [Suspect]
     Active Substance: CYTARABINE
     Dosage: UNK (INDUCTION II DAY 2)
     Route: 065
     Dates: start: 20210123
  3. VINCRISTINE SULFATE [Suspect]
     Active Substance: VINCRISTINE SULFATE
     Indication: Product used for unknown indication
     Dosage: UNK (INDUCRTION 1: DAY 1)
     Route: 065
     Dates: start: 20201215, end: 20201215
  4. VINCRISTINE SULFATE [Suspect]
     Active Substance: VINCRISTINE SULFATE
     Dosage: UNK (INDUCTION I; DAY 8)
     Route: 065
     Dates: start: 20201222, end: 20201222
  5. VINCRISTINE SULFATE [Suspect]
     Active Substance: VINCRISTINE SULFATE
     Dosage: UNK (INDUCTION I; DAY 15)
     Route: 065
     Dates: start: 20201229, end: 20201229
  6. VINCRISTINE SULFATE [Suspect]
     Active Substance: VINCRISTINE SULFATE
     Dosage: UNK (INDUCTION I; DAY 22)
     Route: 065
     Dates: start: 20210105, end: 20210105
  7. METHOTREXATE [Suspect]
     Active Substance: METHOTREXATE
     Indication: Product used for unknown indication
     Dosage: UNK (INDUCTION 1: DAY 2)
     Route: 065
     Dates: start: 20201216, end: 20201216
  8. METHOTREXATE [Suspect]
     Active Substance: METHOTREXATE
     Dosage: UNK (INDUCTION II; DAY 2)
     Route: 065
     Dates: start: 20210123, end: 20210123
  9. CYCLOPHOSPHAMIDE [Suspect]
     Active Substance: CYCLOPHOSPHAMIDE
     Indication: Product used for unknown indication
     Dosage: UNK (INDUCTION 2; DAY 1)
     Route: 065
     Dates: start: 20210122, end: 20210122
  10. CYCLOPHOSPHAMIDE [Suspect]
     Active Substance: CYCLOPHOSPHAMIDE
     Dosage: UNK (INDUCTION II; DAY 2)
     Route: 065
     Dates: start: 20210123, end: 20210123
  11. CYCLOPHOSPHAMIDE [Suspect]
     Active Substance: CYCLOPHOSPHAMIDE
     Dosage: UNK (INDUCTION II; DAY 3)
     Route: 065
     Dates: start: 20210124, end: 20210124
  12. CYCLOPHOSPHAMIDE [Suspect]
     Active Substance: CYCLOPHOSPHAMIDE
     Indication: Product used for unknown indication
     Dosage: UNK (INDUCTION 2; DAY 1)
     Route: 065
     Dates: start: 20210122, end: 20210122
  13. CYCLOPHOSPHAMIDE [Suspect]
     Active Substance: CYCLOPHOSPHAMIDE
     Dosage: UNK (INDUCTION II; DAY 2)
     Route: 065
     Dates: start: 20210123, end: 20210123
  14. CYCLOPHOSPHAMIDE [Suspect]
     Active Substance: CYCLOPHOSPHAMIDE
     Dosage: UNK (INDUCTION II; DAY 3)
     Route: 065
     Dates: start: 20210124, end: 20210124
  15. INOTUZUMAB OZOGAMICIN [Suspect]
     Active Substance: INOTUZUMAB OZOGAMICIN
     Indication: Product used for unknown indication
     Dosage: UNK (INDUCTION 1: DAY 1)
     Route: 065
     Dates: start: 20201215, end: 20201215
  16. INOTUZUMAB OZOGAMICIN [Suspect]
     Active Substance: INOTUZUMAB OZOGAMICIN
     Dosage: UNK (INDUCTION I; DAY 8)
     Route: 065
     Dates: start: 20201222, end: 20201222
  17. INOTUZUMAB OZOGAMICIN [Suspect]
     Active Substance: INOTUZUMAB OZOGAMICIN
     Dosage: UNK (INDUCTION I; DAY 15)
     Route: 065
     Dates: start: 20201229, end: 20201229
  18. INOTUZUMAB OZOGAMICIN [Suspect]
     Active Substance: INOTUZUMAB OZOGAMICIN
     Dosage: UNK (INDUCTION II; DAY 1)
     Route: 065
     Dates: start: 20210122, end: 20210122
  19. INOTUZUMAB OZOGAMICIN [Suspect]
     Active Substance: INOTUZUMAB OZOGAMICIN
     Dosage: UNK (INDUCTION II; DAY 8)
     Route: 065
     Dates: start: 20210129, end: 20210129

REACTIONS (1)
  - Jugular vein thrombosis [Recovered/Resolved]

NARRATIVE: CASE EVENT DATE: 20210121
